FAERS Safety Report 13622013 (Version 1)
Quarter: 2017Q2

REPORT INFORMATION
  Report Type: Spontaneous
  Country: US (occurrence: US)
  Receive Date: 20170607
  Receipt Date: 20170607
  Transmission Date: 20170830
  Serious: No
  Sender: FDA-Public Use
  Company Number: US-ROCHE-1887014

PATIENT
  Sex: Female
  Weight: 72.64 kg

DRUGS (1)
  1. XELODA [Suspect]
     Active Substance: CAPECITABINE
     Indication: LUNG NEOPLASM MALIGNANT
     Dosage: ONE WEEK ON, ONE WEEK OFF ;ONGOING: YES
     Route: 048

REACTIONS (9)
  - Nausea [Unknown]
  - Stomatitis [Unknown]
  - Skin exfoliation [Recovered/Resolved]
  - Chronic obstructive pulmonary disease [Not Recovered/Not Resolved]
  - Diarrhoea [Unknown]
  - Paraesthesia oral [Unknown]
  - Fatigue [Unknown]
  - Sensory disturbance [Unknown]
  - Lip swelling [Unknown]
